FAERS Safety Report 5788209-6 (Version None)
Quarter: 2008Q2

REPORT INFORMATION
  Report Type: 
  Country: None (occurrence: None)
  Receive Date: 20080620
  Receipt Date: 20080613
  Transmission Date: 20081010
  Serious: Yes (Death)
  Sender: FDA-Public Use
  Company Number: S08-USA-02017-01

PATIENT
  Age: 63 Year
  Sex: Female

DRUGS (10)
  1. NAMENDA [Suspect]
     Indication: SCHIZOPHRENIA, PARANOID TYPE
     Dosage: 10 MG QD PO
     Route: 048
     Dates: start: 20070925, end: 20071008
  2. NAMENDA [Suspect]
     Indication: SCHIZOPHRENIA, PARANOID TYPE
     Dosage: 5 MG QD PO
     Route: 048
     Dates: start: 20070703, end: 20070924
  3. NAMENDA [Suspect]
     Indication: SCHIZOPHRENIA, PARANOID TYPE
     Dosage: 5 MG QD PO
     Route: 048
     Dates: start: 20071009, end: 20080419
  4. RISPERDAL [Concomitant]
  5. ABILIFY [Concomitant]
  6. SERAX [Concomitant]
  7. ZYPREXA [Concomitant]
  8. CRESTOR [Concomitant]
  9. ENALAPRIL MALEATE [Concomitant]
  10. ALBUTEROL [Concomitant]

REACTIONS (8)
  - AGGRESSION [None]
  - ANGER [None]
  - CHRONIC OBSTRUCTIVE PULMONARY DISEASE [None]
  - DISEASE RECURRENCE [None]
  - PARANOIA [None]
  - PNEUMONIA [None]
  - RESPIRATORY ARREST [None]
  - SUDDEN DEATH [None]
